FAERS Safety Report 16268735 (Version 2)
Quarter: 2019Q2

REPORT INFORMATION
  Report Type: Spontaneous
  Country: US (occurrence: US)
  Receive Date: 20190503
  Receipt Date: 20190522
  Transmission Date: 20190711
  Serious: Yes (Other)
  Sender: FDA-Public Use
  Company Number: US-AUROBINDO-AUR-APL-2019-023496

PATIENT

DRUGS (15)
  1. RITONAVIR. [Interacting]
     Active Substance: RITONAVIR
     Indication: HIV INFECTION
     Dosage: 100 MILLIGRAM, ONCE A DAY
     Route: 048
  2. VANCOMYCIN [Concomitant]
     Active Substance: VANCOMYCIN
     Indication: PRODUCT USED FOR UNKNOWN INDICATION
     Dosage: 12.5 GRAM, TWO TIMES A DAY
     Route: 042
  3. ACETYLSALICYLIC ACID [Concomitant]
     Active Substance: ASPIRIN
     Indication: PRODUCT USED FOR UNKNOWN INDICATION
     Dosage: 325 MILLIGRAM, ONCE A DAY
     Route: 048
  4. LIDOCAINE INJECTION [Interacting]
     Active Substance: LIDOCAINE
     Dosage: 2 MILLIGRAM/KILOGRAM, EVERY TWO HOURS (INFUSION AT A RATE OF 2 MG/ KG/H FOR 2 HOURS)
     Route: 065
  5. LIDOCAINE INJECTION [Interacting]
     Active Substance: LIDOCAINE
     Dosage: 1 MILLIGRAM/KILOGRAM, EVERY HOUR (LOW-DOSE CONTINUOUS IV LIDOCAINE INFUSION AT 1 MG/KG/H)
     Route: 041
  6. ROSUVASTATIN. [Concomitant]
     Active Substance: ROSUVASTATIN
     Indication: PRODUCT USED FOR UNKNOWN INDICATION
     Dosage: 40 MILLIGRAM, ONCE A DAY QPM
     Route: 048
  7. LIDOCAINE INJECTION [Suspect]
     Active Substance: LIDOCAINE
     Indication: PROCEDURAL PAIN
     Dosage: 1 MILLIGRAM/KILOGRAM, EVERY HOUR
     Route: 042
  8. METOPROLOL SUCCINATE. [Concomitant]
     Active Substance: METOPROLOL SUCCINATE
     Indication: PRODUCT USED FOR UNKNOWN INDICATION
     Dosage: 25 MILLIGRAM, ONCE A DAY
     Route: 048
  9. CIPROFLOXACIN. [Concomitant]
     Active Substance: CIPROFLOXACIN
     Indication: PRODUCT USED FOR UNKNOWN INDICATION
     Dosage: 400 MILLIGRAM, TWO TIMES A DAY
     Route: 042
  10. LIDOCAINE INJECTION [Interacting]
     Active Substance: LIDOCAINE
     Dosage: 120 MILLIGRAM 1 HOURLY (IV LIDOCAINE BOLUS OF 120 MG)
     Route: 040
  11. HEPARIN [Concomitant]
     Active Substance: HEPARIN SODIUM
     Indication: PRODUCT USED FOR UNKNOWN INDICATION
     Dosage: 5000 INTERNATIONAL UNIT
     Route: 058
  12. CANDESARTAN. [Concomitant]
     Active Substance: CANDESARTAN
     Indication: PRODUCT USED FOR UNKNOWN INDICATION
     Dosage: 16 MILLIGRAM, ONCE A DAY
     Route: 048
  13. ATAZANAVIR. [Interacting]
     Active Substance: ATAZANAVIR
     Indication: HIV INFECTION
     Dosage: 300 MILLIGRAM, ONCE A DAY
     Route: 048
  14. ABACAVIR SULFATE;LAMIVUDINE [Concomitant]
     Active Substance: ABACAVIR SULFATE\LAMIVUDINE
     Indication: HIV INFECTION
     Dosage: UNK, ONCE A DAY
     Route: 048
  15. FENTANYL. [Concomitant]
     Active Substance: FENTANYL
     Indication: ANALGESIC THERAPY
     Dosage: 30 MICROGRAM EVERY 10 MIN
     Route: 042

REACTIONS (9)
  - Sinus tachycardia [Unknown]
  - Oxygen saturation decreased [Recovered/Resolved]
  - Hyperhidrosis [Unknown]
  - Drug level increased [Unknown]
  - Toxicity to various agents [Unknown]
  - Dizziness [Unknown]
  - Unresponsive to stimuli [Recovered/Resolved]
  - Drug interaction [Unknown]
  - Hypertension [Unknown]
